FAERS Safety Report 24252230 (Version 1)
Quarter: 2024Q3

REPORT INFORMATION
  Report Type: Spontaneous
  Country: SE (occurrence: SE)
  Receive Date: 20240827
  Receipt Date: 20240827
  Transmission Date: 20241017
  Serious: Yes (Hospitalization, Disabling)
  Sender: NOVARTIS
  Company Number: None

PATIENT
  Sex: Male

DRUGS (8)
  1. ENTRESTO [Suspect]
     Active Substance: SACUBITRIL\VALSARTAN
     Indication: Cardiac failure
     Dosage: UNK, (STRENGTH: 48.6MG, 113.103 MG, 51.4 MG)
     Route: 065
     Dates: start: 2020, end: 202210
  2. METOPROLOL [Concomitant]
     Active Substance: METOPROLOL
     Indication: Cardiac failure
     Dosage: 100 MG, QD, (1X1), (STRENGHT: 78.08 MG)
     Route: 065
     Dates: start: 2005, end: 2022
  3. METOPROLOL [Concomitant]
     Active Substance: METOPROLOL
     Indication: Hypertension
  4. BRICANYL [Concomitant]
     Active Substance: TERBUTALINE SULFATE
     Indication: Product used for unknown indication
     Dosage: UNK, (1 INH X2-3), (STRENGTH: 0.41 MG/DOSE)
     Route: 065
  5. ELIQUIS [Concomitant]
     Active Substance: APIXABAN
     Indication: Thrombosis prophylaxis
     Dosage: 5 MG, Q12H, (1X2)
     Route: 065
     Dates: start: 2018
  6. FUROSEMIDE [Concomitant]
     Active Substance: FUROSEMIDE
     Indication: Oedema
     Dosage: UNK, (1X1 TIDVIS MOT SVIKT OCH ?DEM)
     Route: 065
  7. FUROSEMIDE [Concomitant]
     Active Substance: FUROSEMIDE
     Indication: Cardiac failure
  8. OXIS [Concomitant]
     Active Substance: FORMOTEROL FUMARATE
     Indication: Product used for unknown indication
     Dosage: 9 UG, QD, (1 INH DAGLIGEN), (STRENGHT: 9 MICROGRAMS/DOSE)
     Route: 065

REACTIONS (3)
  - Neuropathic muscular atrophy [Recovering/Resolving]
  - Muscle atrophy [Recovering/Resolving]
  - Neuromyopathy [Recovering/Resolving]

NARRATIVE: CASE EVENT DATE: 20200101
